FAERS Safety Report 18358665 (Version 1)
Quarter: 2020Q4

REPORT INFORMATION
  Report Type: Report from Study
  Country: US (occurrence: US)
  Receive Date: 20201008
  Receipt Date: 20201008
  Transmission Date: 20210114
  Serious: No
  Sender: FDA-Public Use
  Company Number: US-TERSERA THERAPEUTICS LLC-US2019TSO187206

PATIENT

DRUGS (1)
  1. ROLAPITANT HYDROCHLORIDE [Suspect]
     Active Substance: ROLAPITANT
     Dosage: 90 -180 MG, EVERY 3 WEEKS
     Dates: start: 20190919

REACTIONS (3)
  - Mucosal inflammation [Recovered/Resolved]
  - Hypophagia [Unknown]
  - Rash [Unknown]
